FAERS Safety Report 24142521 (Version 1)
Quarter: 2024Q3

REPORT INFORMATION
  Report Type: Spontaneous
  Country: CH (occurrence: None)
  Receive Date: 20240726
  Receipt Date: 20240726
  Transmission Date: 20241017
  Serious: Yes (Hospitalization)
  Sender: ASTRAZENECA
  Company Number: 2024A170105

PATIENT
  Age: 24 Year
  Sex: Female

DRUGS (10)
  1. QUETIAPINE FUMARATE [Suspect]
     Active Substance: QUETIAPINE FUMARATE
     Dosage: 950.0MG ONCE/SINGLE ADMINISTRATION
     Route: 048
     Dates: start: 20240623
  2. QUETIAPINE FUMARATE [Suspect]
     Active Substance: QUETIAPINE FUMARATE
     Dosage: 50.0MG ONCE/SINGLE ADMINISTRATION
     Route: 048
  3. QUETIAPINE FUMARATE [Suspect]
     Active Substance: QUETIAPINE FUMARATE
     Route: 048
     Dates: start: 20240623
  4. QUETIAPINE FUMARATE [Suspect]
     Active Substance: QUETIAPINE FUMARATE
     Dosage: FIXED MEDICATION
     Route: 048
  5. RISPERIDONE [Suspect]
     Active Substance: RISPERIDONE
     Dosage: 3.0MG ONCE/SINGLE ADMINISTRATION
     Route: 048
     Dates: start: 20230623
  6. RISPERIDONE [Suspect]
     Active Substance: RISPERIDONE
     Dosage: TWICE A DAY3.0MG ONCE/SINGLE ADMINISTRATION
     Route: 048
  7. VIMOVO [Suspect]
     Active Substance: ESOMEPRAZOLE MAGNESIUM\NAPROXEN
     Dosage: 5.0MG ONCE/SINGLE ADMINISTRATION
     Dates: start: 20230623
  8. VIMOVO [Suspect]
     Active Substance: ESOMEPRAZOLE MAGNESIUM\NAPROXEN
     Dosage: 5.0MG ONCE/SINGLE ADMINISTRATION
  9. AKINETON [Concomitant]
     Active Substance: BIPERIDEN HYDROCHLORIDE
  10. SODIUM CHONDROITIN SULFATE [Concomitant]
     Active Substance: SODIUM CHONDROITIN SULFATE

REACTIONS (1)
  - Toxicity to various agents [Unknown]

NARRATIVE: CASE EVENT DATE: 20230601
